FAERS Safety Report 4505580-3 (Version None)
Quarter: 2004Q4

REPORT INFORMATION
  Report Type: 
  Country: None (occurrence: None)
  Receive Date: 20041025
  Receipt Date: 20031222
  Transmission Date: 20050328
  Serious: Yes (Life-Threatening, Hospitalization)
  Sender: FDA-Public Use
  Company Number: US-JNJFOC-20031003659

PATIENT
  Age: 76 Year
  Sex: Male
  Weight: 81.1939 kg

DRUGS (4)
  1. REMICADE [Suspect]
     Indication: RHEUMATOID ARTHRITIS
     Dosage: 300 MG, 1 IN 1 DAY, INTRAVENOUS
     Route: 042
     Dates: start: 20030711
  2. REMICADE [Suspect]
     Indication: RHEUMATOID ARTHRITIS
     Dosage: 300 MG, 1 IN 1 DAY, INTRAVENOUS
     Route: 042
     Dates: start: 20030725
  3. REMICADE [Suspect]
     Indication: RHEUMATOID ARTHRITIS
     Dosage: 300 MG, 1 IN 1 DAY, INTRAVENOUS
     Route: 042
     Dates: start: 20030822
  4. METHOTREXATE SODIUM [Concomitant]

REACTIONS (6)
  - ANOREXIA [None]
  - ANTINUCLEAR ANTIBODY POSITIVE [None]
  - FATIGUE [None]
  - HYPONATRAEMIA [None]
  - LABORATORY TEST ABNORMAL [None]
  - TUBERCULOSIS LIVER [None]
